FAERS Safety Report 7136399-5 (Version None)
Quarter: 2010Q4

REPORT INFORMATION
  Report Type: 
  Country: None (occurrence: None)
  Receive Date: 20101206
  Receipt Date: 20101129
  Transmission Date: 20110411
  Serious: No
  Sender: FDA-Public Use
  Company Number: US-BIOGENIDEC-2010BI042091

PATIENT
  Age: 46 Year
  Sex: Female

DRUGS (2)
  1. TYSABRI [Suspect]
     Indication: MULTIPLE SCLEROSIS
     Route: 042
     Dates: start: 20100927
  2. TYSABRI [Suspect]
     Route: 042
     Dates: start: 20090224, end: 20090713

REACTIONS (5)
  - COUGH [None]
  - EAR PAIN [None]
  - LOWER RESPIRATORY TRACT INFECTION [None]
  - RHINORRHOEA [None]
  - SINUSITIS [None]
